FAERS Safety Report 17902192 (Version 3)
Quarter: 2020Q3

REPORT INFORMATION
  Report Type: Report from Study
  Country: US (occurrence: US)
  Receive Date: 20200616
  Receipt Date: 20200707
  Transmission Date: 20201103
  Serious: Yes (Other)
  Sender: FDA-Public Use
  Company Number: US-ROCHE-2608042

PATIENT
  Sex: Female

DRUGS (2)
  1. OCREVUS [Suspect]
     Active Substance: OCRELIZUMAB
     Indication: RELAPSING MULTIPLE SCLEROSIS
     Route: 042
  2. OCREVUS [Suspect]
     Active Substance: OCRELIZUMAB
     Indication: RELAPSING-REMITTING MULTIPLE SCLEROSIS
     Dosage: 300 MG ON DAY 1 THEN 300 MG ON DAY 15?DATE OF TREATMENT: 25/NOV/2019, 16/JUN/2020
     Route: 042
     Dates: start: 20191111

REACTIONS (6)
  - Progressive relapsing multiple sclerosis [Not Recovered/Not Resolved]
  - Dyspnoea [Not Recovered/Not Resolved]
  - Muscle spasms [Not Recovered/Not Resolved]
  - Blindness [Not Recovered/Not Resolved]
  - Pain [Not Recovered/Not Resolved]
  - Illness [Not Recovered/Not Resolved]
